FAERS Safety Report 23261152 (Version 1)
Quarter: 2023Q4

REPORT INFORMATION
  Report Type: Spontaneous
  Country: US (occurrence: US)
  Receive Date: 20231205
  Receipt Date: 20231205
  Transmission Date: 20240110
  Serious: No
  Sender: FDA-Public Use
  Company Number: US-CELLTRION INC.-2023US000403

PATIENT

DRUGS (1)
  1. TRUXIMA [Suspect]
     Active Substance: RITUXIMAB-ABBS
     Indication: Precursor B-lymphoblastic lymphoma
     Dosage: UNK
     Dates: start: 20220720

REACTIONS (2)
  - Blood pressure decreased [Unknown]
  - Erythema [Unknown]

NARRATIVE: CASE EVENT DATE: 20220720
